FAERS Safety Report 7331800 (Version 4)
Quarter: 2012Q4

REPORT INFORMATION
  Report Type: Spontaneous
  Country: US (occurrence: US)
  Receive Date: 20100325
  Receipt Date: 20121003
  Transmission Date: 20130627
  Serious: Yes (Death)
  Sender: FDA-Public Use
  Company Number: A0851823A

PATIENT
  Age: 45 Year
  Sex: Female
  Weight: 39.6 kg

DRUGS (1)
  1. VOTRIENT TABLET (PAZOPANIB) [Suspect]
     Indication: THYROID CANCER
     Dosage: 800MG Per day
     Route: 048
     Dates: start: 20100121, end: 20100313

REACTIONS (1)
  - Tumour haemorrhage [Fatal]
